FAERS Safety Report 7217590-6 (Version None)
Quarter: 2011Q1

REPORT INFORMATION
  Report Type: 
  Country: None (occurrence: None)
  Receive Date: 20110110
  Receipt Date: 20101231
  Transmission Date: 20110831
  Serious: Yes (Death)
  Sender: FDA-Public Use
  Company Number: US-PFIZER INC-2011003024

PATIENT
  Age: 62 Year
  Sex: Male

DRUGS (10)
  1. ZOLPIDEM [Suspect]
     Route: 048
  2. METHADONE [Suspect]
     Route: 048
  3. SIMVASTATIN [Suspect]
     Route: 048
  4. DIAZEPAM [Suspect]
     Route: 048
  5. FLUOXETINE [Suspect]
     Route: 048
  6. VENLAFAXINE HCL [Suspect]
     Dosage: UNK
     Route: 048
  7. QUETIAPINE [Suspect]
     Route: 048
  8. BUSPIRONE [Suspect]
     Route: 048
  9. TRAMADOL [Suspect]
     Route: 048
  10. ALBUTEROL [Suspect]
     Route: 048

REACTIONS (3)
  - DEATH [None]
  - RESPIRATORY ARREST [None]
  - CARDIAC ARREST [None]
